FAERS Safety Report 19444063 (Version 1)
Quarter: 2021Q2

REPORT INFORMATION
  Report Type: Spontaneous
  Country: BE (occurrence: BE)
  Receive Date: 20210621
  Receipt Date: 20210621
  Transmission Date: 20210717
  Serious: No
  Sender: FDA-Public Use
  Company Number: BE-LUPIN PHARMACEUTICALS INC.-2021-09762

PATIENT
  Age: 29 Year
  Sex: Female

DRUGS (15)
  1. CALCIUM [Suspect]
     Active Substance: CALCIUM
     Dosage: 3 GRAM, QD, CALCIUM CARBONATE
     Route: 048
  2. L?THYROXINE [Suspect]
     Active Substance: LEVOTHYROXINE
     Indication: BASEDOW^S DISEASE
     Dosage: 100 MICROGRAM, QD
     Route: 065
  3. CALCIUM [Suspect]
     Active Substance: CALCIUM
     Indication: HYPOCALCAEMIA
     Dosage: 3 GRAM, QD (CALCIUM  CARBONATE)
     Route: 048
     Dates: start: 2016
  4. ALFACALCIDOL [Suspect]
     Active Substance: ALFACALCIDOL
     Dosage: 16 MICROGRAM, QD
     Route: 065
  5. ALFACALCIDOL [Suspect]
     Active Substance: ALFACALCIDOL
     Dosage: 17 MICROGRAM, QD
     Route: 065
  6. CALCIUM [Suspect]
     Active Substance: CALCIUM
     Dosage: 12 GRAM, QD (CALCIUM GLUCONATE )
     Route: 042
  7. ALFACALCIDOL [Suspect]
     Active Substance: ALFACALCIDOL
     Indication: HYPOCALCAEMIA
     Dosage: 15 MICROGRAM, QD
     Route: 065
     Dates: start: 2016
  8. L?THYROXINE [Suspect]
     Active Substance: LEVOTHYROXINE
     Dosage: 112.5 MICROGRAM, QD
     Route: 065
  9. D?CURE [Suspect]
     Active Substance: CHOLECALCIFEROL
     Indication: PRODUCT USED FOR UNKNOWN INDICATION
     Dosage: 25000 INTERNATIONAL UNIT EVERY 3 WEEKS
     Route: 065
  10. L?THYROXINE [Suspect]
     Active Substance: LEVOTHYROXINE
     Dosage: 137 MICROGRAM, QD
     Route: 065
  11. L?THYROXINE [Suspect]
     Active Substance: LEVOTHYROXINE
     Dosage: 150 MICROGRAM, QD
     Route: 065
  12. CALCIUM [Suspect]
     Active Substance: CALCIUM
     Dosage: 5 GRAM, QD CALCIUM  CARBONATE
     Route: 048
  13. ALFACALCIDOL [Suspect]
     Active Substance: ALFACALCIDOL
     Dosage: 14 MICROGRAM, QD
     Route: 065
  14. ALFACALCIDOL [Suspect]
     Active Substance: ALFACALCIDOL
     Dosage: 20 MICROGRAM, QD
     Route: 065
  15. L?THYROXINE [Suspect]
     Active Substance: LEVOTHYROXINE
     Dosage: 125 MICROGRAM, QD
     Route: 065

REACTIONS (2)
  - Gastrointestinal disorder [Unknown]
  - Exposure during pregnancy [Unknown]
